FAERS Safety Report 9318488 (Version 1)
Quarter: 2013Q2

REPORT INFORMATION
  Report Type: Spontaneous
  Country: US (occurrence: US)
  Receive Date: 20130530
  Receipt Date: 20130530
  Transmission Date: 20140414
  Serious: No
  Sender: FDA-Public Use
  Company Number: US-NOVEN-12US005688

PATIENT
  Age: 7 Year
  Sex: Male

DRUGS (3)
  1. DAYTRANA [Suspect]
     Indication: ATTENTION DEFICIT/HYPERACTIVITY DISORDER
     Dosage: 10 MG, ON WEEKDAYS
     Route: 062
     Dates: start: 2012
  2. SINGULAIR [Concomitant]
     Indication: HYPERSENSITIVITY
     Dosage: 5 MG, UNK
     Route: 048
  3. PREVACID [Concomitant]
     Indication: GASTROOESOPHAGEAL REFLUX DISEASE
     Dosage: 30 MG, UNK
     Route: 048

REACTIONS (3)
  - Disturbance in attention [Recovered/Resolved]
  - Accidental exposure to product [Not Recovered/Not Resolved]
  - Product quality issue [Not Recovered/Not Resolved]
